FAERS Safety Report 24193053 (Version 1)
Quarter: 2024Q3

REPORT INFORMATION
  Report Type: Spontaneous
  Country: GB (occurrence: None)
  Receive Date: 20240809
  Receipt Date: 20240809
  Transmission Date: 20241017
  Serious: Yes (Other)
  Sender: ASTRAZENECA
  Company Number: 2024A175970

PATIENT
  Age: 43 Year
  Sex: Female
  Weight: 44 kg

DRUGS (19)
  1. TEZEPELUMAB [Suspect]
     Active Substance: TEZEPELUMAB
     Indication: Adverse drug reaction
     Dosage: 210MG
     Dates: start: 20240411
  2. ACCORD-UK ACICLOVIR [Concomitant]
  3. ATOVAQUONE [Concomitant]
     Active Substance: ATOVAQUONE
  4. AYRTON SAUNDERS BECLOMETASONE [Concomitant]
  5. BUDESONIDE [Concomitant]
     Active Substance: BUDESONIDE
     Indication: Adverse drug reaction
  6. VITAMIN D [Concomitant]
     Active Substance: VITAMIN D NOS
  7. COLOMYCIN [Concomitant]
     Indication: Adverse drug reaction
  8. ETANERCEPT [Concomitant]
     Active Substance: ETANERCEPT
  9. FLUTICASONE PROPIONATE\SALMETEROL XINAFOATE [Concomitant]
     Active Substance: FLUTICASONE PROPIONATE\SALMETEROL XINAFOATE
  10. GABAPENTIN [Concomitant]
     Active Substance: GABAPENTIN
  11. ISAVUCONAZOLE AND ISAVUCONAZONIUM [Concomitant]
  12. METOCLOPRAMIDE [Concomitant]
     Active Substance: METOCLOPRAMIDE
  13. PREDNISOLONE [Concomitant]
     Active Substance: PREDNISOLONE
  14. LIDOCAINE [Concomitant]
     Active Substance: LIDOCAINE
  15. POLYETHYLENE GLYCOLS [Concomitant]
     Active Substance: POLYETHYLENE GLYCOLS
  16. PRUCALOPRIDE [Concomitant]
     Active Substance: PRUCALOPRIDE
  17. ALBUTEROL [Concomitant]
     Active Substance: ALBUTEROL
  18. POTASSIUM BICARBONATE\SODIUM ALGINATE [Concomitant]
     Active Substance: POTASSIUM BICARBONATE\SODIUM ALGINATE
  19. THEOPHYLLINE [Concomitant]
     Active Substance: THEOPHYLLINE

REACTIONS (2)
  - Tendonitis [Not Recovered/Not Resolved]
  - Tendon disorder [Unknown]

NARRATIVE: CASE EVENT DATE: 20240411
